FAERS Safety Report 6892116-5 (Version None)
Quarter: 2010Q3

REPORT INFORMATION
  Report Type: 
  Country: None (occurrence: None)
  Receive Date: 20100731
  Receipt Date: 20080204
  Transmission Date: 20110219
  Serious: Yes (Other)
  Sender: FDA-Public Use
  Company Number: US-PFIZER INC-2007090463

PATIENT
  Sex: Male
  Weight: 113 kg

DRUGS (4)
  1. CAMPTOSAR [Suspect]
     Indication: COLORECTAL CANCER
     Dosage: ON DAY 1 EVERY 3 WEEKS
     Route: 042
     Dates: start: 20060905, end: 20071201
  2. FOLINIC ACID [Concomitant]
  3. FLUOROURACIL [Concomitant]
  4. CETUXIMAB [Concomitant]
     Dosage: ON DAYS 1, 8 AND 15

REACTIONS (4)
  - COLORECTAL CANCER [None]
  - DISEASE PROGRESSION [None]
  - MUSCLE SPASMS [None]
  - NAUSEA [None]
